FAERS Safety Report 5254709-0 (Version None)
Quarter: 2007Q1

REPORT INFORMATION
  Report Type: 
  Country: None (occurrence: None)
  Receive Date: 20070227
  Receipt Date: 20070212
  Transmission Date: 20070707
  Serious: Yes (Death, Hospitalization)
  Sender: FDA-Public Use
  Company Number: POMP-10962

PATIENT
  Age: 12 Month
  Sex: Female
  Weight: 9.6 kg

DRUGS (4)
  1. MYOZYME [Suspect]
     Indication: GLYCOGEN STORAGE DISEASE TYPE II
     Dosage: 200 MG Q2WKS IV
     Route: 042
     Dates: start: 20060721, end: 20070206
  2. LASIX [Concomitant]
  3. CAPTOPRIL [Concomitant]
  4. COREG [Concomitant]

REACTIONS (5)
  - ASTHENIA [None]
  - CARDIAC FAILURE [None]
  - CONDITION AGGRAVATED [None]
  - RESPIRATORY FAILURE [None]
  - URINARY TRACT INFECTION [None]
